FAERS Safety Report 23481430 (Version 1)
Quarter: 2024Q1

REPORT INFORMATION
  Report Type: Spontaneous
  Country: US (occurrence: US)
  Receive Date: 20240205
  Receipt Date: 20240205
  Transmission Date: 20240410
  Serious: Yes (Other)
  Sender: FDA-Public Use
  Company Number: US-MLMSERVICE-20240116-4777807-1

PATIENT
  Age: 4 Decade
  Sex: Male

DRUGS (5)
  1. CAPECITABINE [Suspect]
     Active Substance: CAPECITABINE
     Indication: Rectal adenocarcinoma
  2. OXALIPLATIN [Suspect]
     Active Substance: OXALIPLATIN
     Indication: Rectal adenocarcinoma
  3. VANCOMYCIN [Concomitant]
     Active Substance: VANCOMYCIN
     Route: 042
  4. ERTAPENEM [Concomitant]
     Active Substance: ERTAPENEM
  5. PREDNISONE [Concomitant]
     Active Substance: PREDNISONE
     Dosage: 60 MG/DAY WAS STARTED FOR 7 DAYS ANDTHEN TAPERED OVER 2 WEEKS?DAILY DOSE: 60 MILLIGRAM

REACTIONS (1)
  - Acute febrile neutrophilic dermatosis [Recovered/Resolved]
